FAERS Safety Report 10365690 (Version 1)
Quarter: 2014Q3

REPORT INFORMATION
  Report Type: Spontaneous
  Country: FR (occurrence: None)
  Receive Date: 20140804
  Receipt Date: 20140804
  Transmission Date: 20150326
  Serious: Yes (Other)
  Sender: FDA-Public Use
  Company Number: 2457396

PATIENT
  Age: 71 Year
  Sex: Female

DRUGS (2)
  1. (CARBOPLATIN) [Suspect]
     Active Substance: CARBOPLATIN
     Indication: MESOTHELIOMA
     Route: 042
     Dates: start: 20140708, end: 20140708
  2. (ALTIMTA) [Concomitant]

REACTIONS (5)
  - Generalised erythema [None]
  - Cough [None]
  - Paraesthesia [None]
  - Oedema peripheral [None]
  - Pruritus [None]

NARRATIVE: CASE EVENT DATE: 20140708
